FAERS Safety Report 5927729-8 (Version None)
Quarter: 2008Q4

REPORT INFORMATION
  Report Type: 
  Country: None (occurrence: None)
  Receive Date: 20081020
  Receipt Date: 20081010
  Transmission Date: 20090506
  Serious: Yes (Hospitalization, Other)
  Sender: FDA-Public Use
  Company Number: 2006BI017962

PATIENT
  Age: 57 Year
  Sex: Female

DRUGS (3)
  1. AVONEX [Suspect]
     Indication: MULTIPLE SCLEROSIS
     Dosage: IM
     Route: 030
     Dates: start: 20010101
  2. . [Concomitant]
  3. . [Concomitant]

REACTIONS (20)
  - ASTHENIA [None]
  - BALANCE DISORDER [None]
  - BLISTER [None]
  - BLOOD POTASSIUM DECREASED [None]
  - CATARACT OPERATION [None]
  - CONDITION AGGRAVATED [None]
  - CONVULSION [None]
  - DEHYDRATION [None]
  - DEPRESSION [None]
  - DIARRHOEA [None]
  - DYSGRAPHIA [None]
  - EMOTIONAL DISORDER [None]
  - FALL [None]
  - FEELING ABNORMAL [None]
  - MIGRAINE [None]
  - MULTIPLE SCLEROSIS [None]
  - OPEN WOUND [None]
  - PAIN [None]
  - SYNCOPE [None]
  - TRANSIENT ISCHAEMIC ATTACK [None]
